FAERS Safety Report 8920916 (Version 1)
Quarter: 2012Q4

REPORT INFORMATION
  Report Type: 
  Country: US (occurrence: US)
  Receive Date: 20121122
  Receipt Date: 20121122
  Transmission Date: 20130627
  Serious: Yes (Other)
  Sender: FDA-Public Use
  Company Number: US-PFIZER INC-2012291523

PATIENT
  Age: 82 Year
  Sex: Female
  Weight: 77.1 kg

DRUGS (9)
  1. SUTENT [Suspect]
     Indication: RENAL CELL CARCINOMA
     Dosage: 50 mg, 1x/day
     Route: 048
     Dates: start: 201209
  2. FERROUS SULPHATE [Concomitant]
     Dosage: 325 mg, UNK
  3. LIPITOR [Concomitant]
     Dosage: 80 mg, 1x/day
  4. ALLOPURINOL [Concomitant]
     Indication: GOUT
     Dosage: 100 mg, 1x/day
  5. ATENOLOL [Concomitant]
     Indication: HYPERTENSION
     Dosage: 100 mg, 1x/day
  6. NORVASC [Concomitant]
     Indication: HYPERTENSION
     Dosage: 10 mg, 1x/day
  7. PLAVIX [Concomitant]
     Dosage: 75 mg, 1x/day
  8. COLACE [Concomitant]
     Dosage: 100 mg, UNK
  9. ZOFRAN [Concomitant]
     Dosage: 8 mg, 3x/day

REACTIONS (4)
  - Haemorrhage [Not Recovered/Not Resolved]
  - Nausea [Not Recovered/Not Resolved]
  - Vomiting [Not Recovered/Not Resolved]
  - Tongue discolouration [Not Recovered/Not Resolved]
